FAERS Safety Report 24107082 (Version 1)
Quarter: 2024Q3

REPORT INFORMATION
  Report Type: Spontaneous
  Country: US (occurrence: US)
  Receive Date: 20240718
  Receipt Date: 20240718
  Transmission Date: 20241017
  Serious: No
  Sender: ABBVIE
  Company Number: US-ABBVIE-5833963

PATIENT
  Sex: Female

DRUGS (3)
  1. BOTOX COSMETIC [Suspect]
     Active Substance: ONABOTULINUMTOXINA
     Indication: Skin wrinkling
     Dosage: TIME INTERVAL: AS NECESSARY: TOTAL 18 UNITS
     Route: 065
     Dates: start: 20240629, end: 20240629
  2. BOTOX COSMETIC [Suspect]
     Active Substance: ONABOTULINUMTOXINA
     Indication: Skin wrinkling
     Dosage: TIME INTERVAL: AS NECESSARY: TOTAL 18 UNITS
     Route: 065
     Dates: start: 20240629, end: 20240629
  3. BOTOX COSMETIC [Suspect]
     Active Substance: ONABOTULINUMTOXINA
     Indication: Skin wrinkling
     Dosage: TIME INTERVAL: AS NECESSARY: TOTAL 18 UNITS
     Route: 065
     Dates: start: 20240629, end: 20240629

REACTIONS (6)
  - Peripheral swelling [Unknown]
  - Constipation [Unknown]
  - Abdominal pain upper [Unknown]
  - Eye pain [Unknown]
  - Swelling face [Unknown]
  - Urticaria [Unknown]

NARRATIVE: CASE EVENT DATE: 20240630
